FAERS Safety Report 8080753-4 (Version None)
Quarter: 2012Q1

REPORT INFORMATION
  Report Type: 
  Country: None (occurrence: None)
  Receive Date: 20120130
  Receipt Date: 20120125
  Transmission Date: 20120608
  Serious: Yes (Death, Hospitalization)
  Sender: FDA-Public Use
  Company Number: PHHY2012EC001454

PATIENT
  Sex: Female

DRUGS (3)
  1. DIOVAN HCT [Suspect]
     Dosage: 2 DF (160/12.5 MG), BID
     Route: 048
     Dates: start: 20110601, end: 20110701
  2. DIOVAN HCT [Suspect]
     Indication: HYPERTENSION
     Dosage: 1 DF(160/12.5 MG) DAILY
     Route: 048
     Dates: end: 20110601
  3. DIOVAN HCT [Suspect]
     Dosage: 3 DF(160/12.5 MG) DAILY
     Route: 048
     Dates: start: 20110801

REACTIONS (3)
  - CEREBROVASCULAR ACCIDENT [None]
  - HEADACHE [None]
  - BLOOD PRESSURE INADEQUATELY CONTROLLED [None]
